FAERS Safety Report 11269665 (Version 1)
Quarter: 2015Q3

REPORT INFORMATION
  Report Type: Spontaneous
  Country: US (occurrence: None)
  Receive Date: 20150713
  Receipt Date: 20150713
  Transmission Date: 20151125
  Serious: No
  Sender: FDA-Public Use
  Company Number: None

PATIENT
  Age: 42 Year
  Sex: Female
  Weight: 98.1 kg

DRUGS (1)
  1. DEXAMETHASONE. [Suspect]
     Active Substance: DEXAMETHASONE
     Indication: COMPLEX REGIONAL PAIN SYNDROME
     Route: 042
     Dates: start: 20150612, end: 20150612

REACTIONS (3)
  - Tremor [None]
  - Nervousness [None]
  - Hyperhidrosis [None]

NARRATIVE: CASE EVENT DATE: 20150612
